FAERS Safety Report 5937217-0 (Version None)
Quarter: 2008Q4

REPORT INFORMATION
  Report Type: 
  Country: None (occurrence: None)
  Receive Date: 20081031
  Receipt Date: 20081020
  Transmission Date: 20090506
  Serious: Yes (Other)
  Sender: FDA-Public Use
  Company Number: DE-AMGEN-US316230

PATIENT
  Age: 49 Year
  Sex: Female

DRUGS (2)
  1. ENBREL [Suspect]
     Indication: ANKYLOSING SPONDYLITIS
     Dosage: 2 INJECTIONS PER WEEK
     Route: 058
     Dates: start: 20050101, end: 20060101
  2. PREDNISOLONE [Concomitant]
     Indication: BACK PAIN
     Dosage: HIGH-DOSE
     Route: 065

REACTIONS (1)
  - RELAPSING-REMITTING MULTIPLE SCLEROSIS [None]
